FAERS Safety Report 16954423 (Version 3)
Quarter: 2019Q4

REPORT INFORMATION
  Report Type: Report from Study
  Country: US (occurrence: US)
  Receive Date: 20191023
  Receipt Date: 20191126
  Transmission Date: 20200122
  Serious: Yes (Other)
  Sender: FDA-Public Use
  Company Number: NVSC2019US013113

PATIENT
  Sex: Male

DRUGS (1)
  1. COSENTYX [Suspect]
     Active Substance: SECUKINUMAB
     Indication: PRODUCT USED FOR UNKNOWN INDICATION
     Dosage: 300 MG, QMO
     Route: 065

REACTIONS (2)
  - Rash [Unknown]
  - Respiratory tract infection [Unknown]
